FAERS Safety Report 5928544-1 (Version None)
Quarter: 2008Q3

REPORT INFORMATION
  Report Type: 
  Country: None (occurrence: None)
  Receive Date: 20080923
  Receipt Date: 20071206
  Transmission Date: 20090109
  Serious: Yes (Hospitalization)
  Sender: FDA-Public Use
  Company Number: WAES 0712USA02114

PATIENT
  Age: 74 Year
  Sex: Male

DRUGS (2)
  1. VYTORIN [Suspect]
     Dosage: 10-40 MG/DAILY/PO
     Route: 048
  2. [THERAPY UNSPECIFIED] [Concomitant]

REACTIONS (1)
  - RHABDOMYOLYSIS [None]
